FAERS Safety Report 4364537-6 (Version None)
Quarter: 2004Q2

REPORT INFORMATION
  Report Type: 
  Country: None (occurrence: None)
  Receive Date: 20040521
  Receipt Date: 20040513
  Transmission Date: 20050107
  Serious: Yes (Death)
  Sender: FDA-Public Use
  Company Number: US-JNJFOC-20040406371

PATIENT
  Age: 76 Year
  Sex: Female

DRUGS (2)
  1. DITROPAN XL [Suspect]
     Dosage: 10 MG, ORAL
     Route: 048
     Dates: start: 20020101
  2. COUMADIN [Concomitant]

REACTIONS (1)
  - ATHEROSCLEROSIS [None]
